FAERS Safety Report 14948574 (Version 1)
Quarter: 2018Q2

REPORT INFORMATION
  Report Type: Report from Study
  Country: CZ (occurrence: CZ)
  Receive Date: 20180529
  Receipt Date: 20180529
  Transmission Date: 20180711
  Serious: Yes (Other)
  Sender: FDA-Public Use
  Company Number: CZ-PFIZER INC-2018212326

PATIENT
  Age: 62 Year
  Sex: Male

DRUGS (14)
  1. 5-FU /00098801/ [Suspect]
     Active Substance: FLUOROURACIL
     Dosage: 4800 MG, CYCLIC
     Route: 041
     Dates: start: 20150707
  2. IRINOTECAN HCL [Suspect]
     Active Substance: IRINOTECAN HYDROCHLORIDE
     Dosage: 360 MG, CYCLIC
     Route: 041
     Dates: start: 20150707
  3. IRINOTECAN HCL [Suspect]
     Active Substance: IRINOTECAN HYDROCHLORIDE
     Indication: COLORECTAL CANCER METASTATIC
     Dosage: 360 MG, CYCLIC
     Route: 041
     Dates: start: 20150202, end: 20150202
  4. LEUCOVORIN /00566701/ [Suspect]
     Active Substance: LEUCOVORIN
     Dosage: 800 MG, CYCLIC
     Route: 041
     Dates: start: 20150707
  5. LOSEPRAZOL [Concomitant]
     Active Substance: OMEPRAZOLE
     Dosage: UNK
     Route: 065
     Dates: start: 201408
  6. LEUCOVORIN /00566701/ [Suspect]
     Active Substance: LEUCOVORIN
     Indication: COLORECTAL CANCER METASTATIC
     Dosage: 800 MG, CYCLIC
     Route: 041
     Dates: start: 20150202, end: 20150202
  7. AFLIBERCEPT [Suspect]
     Active Substance: AFLIBERCEPT
     Dosage: 360 MG, CYCLIC
     Route: 041
     Dates: start: 20150707
  8. APAURIN [Concomitant]
     Active Substance: DIAZEPAM
     Dosage: UNK
     Route: 065
     Dates: start: 20150707, end: 20150707
  9. 5-FU /00098801/ [Suspect]
     Active Substance: FLUOROURACIL
     Indication: COLORECTAL CANCER METASTATIC
     Dosage: 800 MG, CYCLIC
     Route: 040
     Dates: start: 20150202, end: 20150202
  10. 5-FU /00098801/ [Suspect]
     Active Substance: FLUOROURACIL
     Dosage: 4800 MG, CYCLIC
     Route: 041
     Dates: start: 20150202, end: 20150202
  11. 5-FU /00098801/ [Suspect]
     Active Substance: FLUOROURACIL
     Dosage: 800 MG, CYCLIC
     Route: 040
     Dates: start: 20150707, end: 20150707
  12. AFLIBERCEPT [Suspect]
     Active Substance: AFLIBERCEPT
     Indication: COLORECTAL CANCER METASTATIC
     Dosage: 360 MG, CYCLIC
     Route: 041
     Dates: start: 20150202, end: 20150202
  13. EMEND [Concomitant]
     Active Substance: APREPITANT
     Dosage: UNK
     Route: 065
  14. QUAMATEL [Concomitant]
     Active Substance: FAMOTIDINE
     Dosage: UNK
     Route: 065
     Dates: start: 20150707, end: 20150707

REACTIONS (1)
  - Hypokalaemia [Not Recovered/Not Resolved]

NARRATIVE: CASE EVENT DATE: 20150720
